FAERS Safety Report 15343502 (Version 2)
Quarter: 2019Q1

REPORT INFORMATION
  Report Type: Spontaneous
  Country: US (occurrence: US)
  Receive Date: 20180903
  Receipt Date: 20190304
  Transmission Date: 20190417
  Serious: No
  Sender: FDA-Public Use
  Company Number: US-PFIZER INC-2018350805

PATIENT
  Age: 47 Year
  Sex: Female

DRUGS (1)
  1. EUCRISA [Suspect]
     Active Substance: CRISABOROLE
     Dosage: UNK, 2X/DAY (APPLIED TO AFFECTED AREA(S) ON LOWER LEGS)
     Route: 061
     Dates: start: 201807

REACTIONS (3)
  - Application site pain [Unknown]
  - Rash [Unknown]
  - Drug ineffective [Unknown]
